FAERS Safety Report 20258629 (Version 1)
Quarter: 2021Q4

REPORT INFORMATION
  Report Type: Spontaneous
  Country: JP (occurrence: JP)
  Receive Date: 20211230
  Receipt Date: 20211230
  Transmission Date: 20220303
  Serious: Yes (Death)
  Sender: FDA-Public Use
  Company Number: JP-Eisai-202105352_HAL-STS_P_1

PATIENT
  Age: 83 Year
  Sex: Female

DRUGS (2)
  1. HALAVEN [Suspect]
     Active Substance: ERIBULIN MESYLATE
     Indication: Soft tissue sarcoma
     Route: 041
     Dates: start: 20210707, end: 2021
  2. HALAVEN [Suspect]
     Active Substance: ERIBULIN MESYLATE
     Route: 041
     Dates: start: 2021

REACTIONS (6)
  - Cardiac failure [Fatal]
  - Fall [Fatal]
  - Neutropenia [Unknown]
  - Alopecia [Unknown]
  - Hypertension [Unknown]
  - Blood creatine phosphokinase increased [Unknown]

NARRATIVE: CASE EVENT DATE: 20210101
